FAERS Safety Report 6940401-0 (Version None)
Quarter: 2010Q3

REPORT INFORMATION
  Report Type: 
  Country: None (occurrence: None)
  Receive Date: 20100825
  Receipt Date: 20100823
  Transmission Date: 20110219
  Serious: Yes (Other)
  Sender: FDA-Public Use
  Company Number: DE-SANOFI-AVENTIS-2010SA046493

PATIENT
  Age: 77 Year
  Sex: Male

DRUGS (6)
  1. TAXOTERE [Suspect]
     Indication: PROSTATE CANCER
     Route: 041
     Dates: start: 20100317, end: 20100317
  2. TAXOTERE [Suspect]
     Route: 041
     Dates: start: 20100630, end: 20100630
  3. PREDNISONE [Concomitant]
     Indication: CHEMOTHERAPY
     Route: 048
     Dates: start: 20100310, end: 20100310
  4. DEXAMETHASONE [Concomitant]
     Indication: CHEMOTHERAPY
     Route: 048
     Dates: start: 20100310, end: 20100310
  5. DEXAMETHASONE [Concomitant]
     Route: 048
     Dates: start: 20100629, end: 20100629
  6. ZOMETA [Concomitant]
     Dosage: EVERY FOUR WEEKS
     Route: 041
     Dates: start: 20100609, end: 20100609

REACTIONS (1)
  - BURSITIS [None]
